FAERS Safety Report 14836076 (Version 1)
Quarter: 2018Q2

REPORT INFORMATION
  Report Type: Spontaneous
  Country: US (occurrence: US)
  Receive Date: 20180502
  Receipt Date: 20180502
  Transmission Date: 20180711
  Serious: No
  Sender: FDA-Public Use
  Company Number: US-PFIZER INC-2018172912

PATIENT
  Age: 8 Year
  Sex: Female

DRUGS (1)
  1. GENOTROPIN [Suspect]
     Active Substance: SOMATROPIN
     Dosage: 1.2 MG, 1X/DAY
     Route: 058

REACTIONS (6)
  - Tremor [Unknown]
  - Food poisoning [Unknown]
  - Gastroenteritis viral [Unknown]
  - Malaise [Unknown]
  - Vomiting [Unknown]
  - Pyrexia [Unknown]
